FAERS Safety Report 6091605-3 (Version None)
Quarter: 2009Q1

REPORT INFORMATION
  Report Type: 
  Country: None (occurrence: None)
  Receive Date: 20090225
  Receipt Date: 20080207
  Transmission Date: 20090719
  Serious: No
  Sender: FDA-Public Use
  Company Number: A0709453A

PATIENT
  Sex: Female

DRUGS (2)
  1. VALTREX [Suspect]
     Indication: GENITAL HERPES
     Route: 048
     Dates: start: 19980101
  2. STEROIDS [Concomitant]
     Dates: start: 20071001

REACTIONS (1)
  - HERPES SIMPLEX [None]
